FAERS Safety Report 17577595 (Version 1)
Quarter: 2020Q1

REPORT INFORMATION
  Report Type: Report from Study
  Country: US (occurrence: US)
  Receive Date: 20200324
  Receipt Date: 20200324
  Transmission Date: 20200409
  Serious: Yes (Other)
  Sender: FDA-Public Use
  Company Number: US-ROCHE-2559779

PATIENT
  Age: 77 Year
  Sex: Male

DRUGS (12)
  1. ESBRIET [Suspect]
     Active Substance: PIRFENIDONE
     Dosage: TOOK THE PM DOSE ONLY
     Route: 048
     Dates: start: 20200218
  2. ESBRIET [Suspect]
     Active Substance: PIRFENIDONE
     Dosage: TOOK NOON AND THE PM DOSE
     Route: 048
     Dates: start: 20200219
  3. ESBRIET [Suspect]
     Active Substance: PIRFENIDONE
     Dosage: TOOK THE NOON DOSE ONLY
     Route: 048
     Dates: start: 20200225
  4. ESBRIET [Suspect]
     Active Substance: PIRFENIDONE
     Indication: IDIOPATHIC PULMONARY FIBROSIS
     Dosage: TWO 267MG TWICE A DAY ;ONGOING: YES
     Route: 048
     Dates: start: 201911
  5. ESBRIET [Suspect]
     Active Substance: PIRFENIDONE
     Dosage: TOOK THE PM DOSE ONLY
     Route: 048
     Dates: start: 20200216
  6. ESBRIET [Suspect]
     Active Substance: PIRFENIDONE
     Dosage: TOOK NOON AND THE PM DOSE
     Route: 048
     Dates: start: 20200215
  7. ESBRIET [Suspect]
     Active Substance: PIRFENIDONE
     Dosage: TOOK THE PM DOSE ONLY
     Route: 048
     Dates: start: 20200217
  8. ESBRIET [Suspect]
     Active Substance: PIRFENIDONE
     Dosage: TOOK THE PM DOSE ONLY
     Route: 048
     Dates: start: 20200220
  9. ESBRIET [Suspect]
     Active Substance: PIRFENIDONE
     Dosage: TOOK THE NOON DOSE ONLY
     Route: 048
     Dates: start: 20200221
  10. ESBRIET [Suspect]
     Active Substance: PIRFENIDONE
     Dosage: TOOK THE PM DOSE ONLY
     Route: 048
     Dates: start: 20200222
  11. ESBRIET [Suspect]
     Active Substance: PIRFENIDONE
     Dosage: TOOK NOON AND THE PM DOSE
     Route: 048
     Dates: start: 20200224
  12. ESBRIET [Suspect]
     Active Substance: PIRFENIDONE
     Dosage: TOOK THE PM DOSE ONLY
     Route: 048
     Dates: start: 20200226

REACTIONS (11)
  - Cerebrovascular accident [Unknown]
  - Pyrexia [Recovered/Resolved with Sequelae]
  - Malaise [Unknown]
  - Memory impairment [Not Recovered/Not Resolved]
  - Gastrooesophageal reflux disease [Recovered/Resolved with Sequelae]
  - Pneumonia [Unknown]
  - Pharyngeal inflammation [Unknown]
  - Fatigue [Unknown]
  - Lyme disease [Not Recovered/Not Resolved]
  - Dysgeusia [Not Recovered/Not Resolved]
  - Depression [Unknown]

NARRATIVE: CASE EVENT DATE: 202002
